FAERS Safety Report 25500508 (Version 2)
Quarter: 2025Q3

REPORT INFORMATION
  Report Type: Report from Study
  Country: IN (occurrence: IN)
  Receive Date: 20250701
  Receipt Date: 20250703
  Transmission Date: 20251021
  Serious: Yes (Other)
  Sender: TAKEDA
  Company Number: IN-TAKEDA-2025TUS057890

PATIENT
  Sex: Female

DRUGS (1)
  1. VEDOLIZUMAB [Suspect]
     Active Substance: VEDOLIZUMAB
     Indication: Crohn^s disease

REACTIONS (2)
  - Crohn^s disease [Unknown]
  - Inappropriate schedule of product administration [Unknown]
